FAERS Safety Report 15975184 (Version 1)
Quarter: 2019Q1

REPORT INFORMATION
  Report Type: Spontaneous
  Country: BR (occurrence: BR)
  Receive Date: 20190218
  Receipt Date: 20190218
  Transmission Date: 20190418
  Serious: Yes (Congenital Anomaly)
  Sender: FDA-Public Use
  Company Number: BR-SA-2019SA037884

PATIENT

DRUGS (4)
  1. NATELE [Concomitant]
     Active Substance: VITAMINS
     Indication: PREGNANCY
     Dosage: 1 DF, QD
     Route: 048
     Dates: start: 20181230
  2. LANTUS [Suspect]
     Active Substance: INSULIN GLARGINE
     Indication: DIABETES MELLITUS
     Dosage: 45 UIU, QD
     Route: 058
     Dates: start: 201509
  3. VITAMIN D [Concomitant]
     Active Substance: CHOLECALCIFEROL
     Indication: PREGNANCY
     Dosage: 4000 UIU, QD
     Route: 048
     Dates: start: 201509
  4. HUMALOG [Concomitant]
     Active Substance: INSULIN LISPRO
     Indication: DIABETES MELLITUS
     Dosage: 1 UI FOR EACH 2 G CARBOHYDRATE
     Route: 058
     Dates: start: 201509

REACTIONS (2)
  - Growth retardation [Unknown]
  - Foetal growth abnormality [Unknown]
